FAERS Safety Report 4408269-4 (Version None)
Quarter: 2004Q3

REPORT INFORMATION
  Report Type: 
  Country: None (occurrence: None)
  Receive Date: 20040722
  Receipt Date: 20040706
  Transmission Date: 20050211
  Serious: Yes (Hospitalization)
  Sender: FDA-Public Use
  Company Number: DSA_24610_2004

PATIENT
  Age: 71 Year
  Sex: Male
  Weight: 47 kg

DRUGS (7)
  1. ENALAPRIL MALEATE [Suspect]
     Indication: HYPERTENSION
     Dosage: 5 MG BID PO
     Route: 048
     Dates: start: 20040205, end: 20040623
  2. BLOPRESS [Suspect]
     Indication: HYPERTENSION
     Dosage: 8 MG Q DAY PO
     Route: 048
     Dates: start: 20040415
  3. ADALAT [Concomitant]
  4. PRECIPITATED CALCIUM CARBONATE [Concomitant]
  5. LASIX [Concomitant]
  6. ALFAROL [Concomitant]
  7. POLARAMINE [Concomitant]

REACTIONS (3)
  - ANGIONEUROTIC OEDEMA [None]
  - INJECTION SITE REACTION [None]
  - URTICARIA [None]
